FAERS Safety Report 5471715-1 (Version None)
Quarter: 2007Q3

REPORT INFORMATION
  Report Type: 
  Country: None (occurrence: None)
  Receive Date: 20070928
  Receipt Date: 20070416
  Transmission Date: 20080115
  Serious: No
  Sender: FDA-Public Use
  Company Number: US-BRISTOL-MYERS SQUIBB COMPANY-13748538

PATIENT
  Age: 64 Year
  Sex: Male
  Weight: 86 kg

DRUGS (3)
  1. DEFINITY [Suspect]
     Indication: STRESS ECHOCARDIOGRAM
  2. ASPIRIN [Concomitant]
  3. LOTREL [Concomitant]

REACTIONS (1)
  - BACK PAIN [None]
